FAERS Safety Report 6913033-8 (Version None)
Quarter: 2010Q3

REPORT INFORMATION
  Report Type: 
  Country: None (occurrence: None)
  Receive Date: 20100806
  Receipt Date: 20090616
  Transmission Date: 20110219
  Serious: No
  Sender: FDA-Public Use
  Company Number: US-PFIZER INC-2009163763

PATIENT
  Sex: Female
  Weight: 57.1 kg

DRUGS (5)
  1. DETROL LA [Suspect]
     Indication: HYPERTONIC BLADDER
     Dosage: 4 MG, 1X/DAY
     Route: 048
     Dates: start: 20070809, end: 20071001
  2. DITROPAN [Suspect]
     Indication: HYPERTONIC BLADDER
     Dosage: 5 MG, 2X/DAY
     Dates: start: 20071001
  3. SUCRALFATE [Concomitant]
  4. NORVASC [Concomitant]
     Dosage: UNK
  5. DYAZIDE [Concomitant]
     Dosage: UNK

REACTIONS (2)
  - DRUG INEFFECTIVE [None]
  - INSOMNIA [None]
